FAERS Safety Report 9778361 (Version 4)
Quarter: 2015Q2

REPORT INFORMATION
  Report Type: Spontaneous
  Country: IT (occurrence: IT)
  Receive Date: 20131223
  Receipt Date: 20150623
  Transmission Date: 20150821
  Serious: Yes (Death, Other)
  Sender: FDA-Public Use
  Company Number: IT-PFIZER INC-2013365203

PATIENT
  Age: 60 Year
  Sex: Male

DRUGS (1)
  1. CISPLATIN. [Suspect]
     Active Substance: CISPLATIN
     Indication: LARYNGEAL CANCER
     Dosage: CUMULATIVE DOSE: 428 MG
     Dates: start: 201005

REACTIONS (7)
  - Acute myeloid leukaemia [Fatal]
  - Lung disorder [Fatal]
  - Pancytopenia [Unknown]
  - Chronic myelomonocytic leukaemia [Fatal]
  - Myeloproliferative disorder [Fatal]
  - Myelodysplastic syndrome [Fatal]
  - Second primary malignancy [Fatal]

NARRATIVE: CASE EVENT DATE: 201105
